FAERS Safety Report 18452962 (Version 2)
Quarter: 2020Q4

REPORT INFORMATION
  Report Type: Spontaneous
  Country: NL (occurrence: PT)
  Receive Date: 20201102
  Receipt Date: 20201109
  Transmission Date: 20210114
  Serious: Yes (Other)
  Sender: FDA-Public Use
  Company Number: PT-GLAXOSMITHKLINE-PT2020EME214557

PATIENT
  Age: 73 Year
  Sex: Female

DRUGS (1)
  1. BUPROPION HYDROCHLORIDE. [Suspect]
     Active Substance: BUPROPION HYDROCHLORIDE
     Indication: SMOKING CESSATION THERAPY
     Dosage: UNK

REACTIONS (8)
  - Skin lesion [Unknown]
  - Acute generalised exanthematous pustulosis [Unknown]
  - Dermatosis [Unknown]
  - Prurigo [Unknown]
  - Psoriasis [Unknown]
  - Rash papular [Unknown]
  - Skin exfoliation [Unknown]
  - Rash pustular [Unknown]

NARRATIVE: CASE EVENT DATE: 20081130
